FAERS Safety Report 7959146-3 (Version None)
Quarter: 2011Q4

REPORT INFORMATION
  Report Type: 
  Country: None (occurrence: None)
  Receive Date: 20111206
  Receipt Date: 20111123
  Transmission Date: 20120403
  Serious: Yes (Other)
  Sender: FDA-Public Use
  Company Number: US-ELI_LILLY_AND_COMPANY-US201110006260

PATIENT
  Sex: Female

DRUGS (7)
  1. ALDACTONE                               /USA/ [Concomitant]
  2. POTASSIUM ACETATE [Concomitant]
  3. LEVOTHYROXINE SODIUM [Concomitant]
  4. CYMBALTA [Suspect]
     Indication: DIABETIC NEUROPATHY
     Dosage: 30 MG, QD
     Dates: start: 20110929
  5. BUMEX [Concomitant]
  6. NORCO [Concomitant]
     Dosage: 10 DF, UNK
  7. XANAX                                   /USA/ [Concomitant]
     Dosage: UNK, PRN

REACTIONS (11)
  - TRANSIENT ISCHAEMIC ATTACK [None]
  - FATIGUE [None]
  - ASTHENIA [None]
  - HYPOAESTHESIA [None]
  - EAR PAIN [None]
  - MOTOR DYSFUNCTION [None]
  - MOBILITY DECREASED [None]
  - INSOMNIA [None]
  - SWELLING [None]
  - FEELING JITTERY [None]
  - PAIN [None]
